FAERS Safety Report 4947489-7 (Version None)
Quarter: 2006Q1

REPORT INFORMATION
  Report Type: 
  Country: None (occurrence: None)
  Receive Date: 20060314
  Receipt Date: 20060221
  Transmission Date: 20060701
  Serious: Yes (Death, Other)
  Sender: FDA-Public Use
  Company Number: NL200601004969

PATIENT
  Age: 48 Year
  Sex: Female

DRUGS (10)
  1. GEMZAR [Suspect]
     Indication: PANCREATIC CARCINOMA METASTATIC
     Dosage: 1250 MG, INTRAVENOUS
     Route: 042
     Dates: start: 20050914
  2. CISPLATIN [Concomitant]
  3. DURAGESIC [Concomitant]
  4. PREGABALIN (PREGABALIN) [Concomitant]
  5. LASIX (FUROSEMIDE, FUROSEMIDE SODIUM) [Concomitant]
  6. ALDACTONE [Concomitant]
  7. TEMAZEPAM [Concomitant]
  8. NEXIUM [Concomitant]
  9. FRAGMIN [Concomitant]
  10. MAGNESIUM OXIDE (MAGNESIUM OXIDE) [Concomitant]

REACTIONS (13)
  - APNOEA [None]
  - ASTHENIA [None]
  - BRADYPNOEA [None]
  - CONTUSION [None]
  - EPISTAXIS [None]
  - HEART RATE INCREASED [None]
  - HYPOTENSION [None]
  - MIOSIS [None]
  - PAIN [None]
  - RESPIRATORY RATE INCREASED [None]
  - SYNCOPE [None]
  - THROMBOCYTOPENIA [None]
  - WRONG TECHNIQUE IN DRUG USAGE PROCESS [None]
